FAERS Safety Report 6327410-X (Version None)
Quarter: 2009Q3

REPORT INFORMATION
  Report Type: 
  Country: None (occurrence: None)
  Receive Date: 20090821
  Receipt Date: 20090811
  Transmission Date: 20100115
  Serious: Yes (Other)
  Sender: FDA-Public Use
  Company Number: ADR15152009

PATIENT
  Age: 51 Year
  Sex: Female

DRUGS (12)
  1. RISPERIDONE [Suspect]
     Indication: SCHIZOAFFECTIVE DISORDER
     Dosage: 3MG (2/1DAY) ORAL
     Route: 048
     Dates: start: 20070730
  2. AMITRIPTYLINE HYDROCHLORIDE [Concomitant]
  3. FRUSEMIDE [Concomitant]
  4. IBUPROFEN [Concomitant]
  5. DIHYDROCODEINE TARTRATE [Concomitant]
  6. FYBOGEL [Concomitant]
  7. LACTULOSE [Concomitant]
  8. LANSOPRAZOLE [Concomitant]
  9. MAXEPA [Concomitant]
  10. NULYTELY [Concomitant]
  11. PARACETAMOL [Concomitant]
  12. VALPROATE SODIUM [Concomitant]

REACTIONS (3)
  - BLOOD OSMOLARITY DECREASED [None]
  - BURNING SENSATION [None]
  - HYPONATRAEMIA [None]
